FAERS Safety Report 12288813 (Version 1)
Quarter: 2016Q2

REPORT INFORMATION
  Report Type: Spontaneous
  Country: JP (occurrence: JP)
  Receive Date: 20160421
  Receipt Date: 20160421
  Transmission Date: 20160815
  Serious: Yes (Hospitalization)
  Sender: FDA-Public Use
  Company Number: JP-INDICUS PHARMA-000410

PATIENT
  Age: 37 Year
  Sex: Male

DRUGS (1)
  1. METFORMIN [Suspect]
     Active Substance: METFORMIN HYDROCHLORIDE
     Dosage: INGESTING AROUND 300 METFORMIN TABLETS (TOTAL DOSE 75 G) FOR SUICIDE ATTEMPT

REACTIONS (6)
  - Suicide attempt [Unknown]
  - Pneumonia aspiration [Unknown]
  - Coma [Recovered/Resolved]
  - Lactic acidosis [Recovered/Resolved]
  - Hypoglycaemia [Recovered/Resolved]
  - Intentional overdose [Unknown]
